FAERS Safety Report 13628456 (Version 2)
Quarter: 2017Q3

REPORT INFORMATION
  Report Type: Report from Study
  Country: US (occurrence: US)
  Receive Date: 20170607
  Receipt Date: 20170712
  Transmission Date: 20171127
  Serious: Yes (Hospitalization, Other)
  Sender: FDA-Public Use
  Company Number: US-B.I. PHARMACEUTICALS,INC./RIDGEFIELD-2017-BI-020997

PATIENT
  Age: 71 Year
  Sex: Female
  Weight: 65.31 kg

DRUGS (6)
  1. ATORVASTATIN [Suspect]
     Active Substance: ATORVASTATIN
     Indication: LIPIDS INCREASED
     Route: 065
     Dates: end: 201702
  2. OFEV [Suspect]
     Active Substance: NINTEDANIB
     Route: 065
     Dates: end: 20170515
  3. OFEV [Suspect]
     Active Substance: NINTEDANIB
     Route: 048
     Dates: end: 20170516
  4. OFEV [Suspect]
     Active Substance: NINTEDANIB
     Route: 048
     Dates: start: 20170118, end: 201702
  5. OFEV [Suspect]
     Active Substance: NINTEDANIB
     Route: 065
     Dates: start: 201609, end: 201702
  6. OFEV [Suspect]
     Active Substance: NINTEDANIB
     Indication: IDIOPATHIC PULMONARY FIBROSIS
     Route: 065
     Dates: start: 201611

REACTIONS (11)
  - Jaundice [Unknown]
  - Abdominal pain [Recovered/Resolved]
  - Lethargy [Unknown]
  - Diarrhoea [Unknown]
  - Liver disorder [Recovered/Resolved]
  - Liver function test increased [Unknown]
  - Confusional state [Unknown]
  - Abdominal pain [Unknown]
  - Liver function test increased [Unknown]
  - Hepatic enzyme increased [Recovered/Resolved]
  - Diarrhoea [Recovered/Resolved]

NARRATIVE: CASE EVENT DATE: 20170118
